FAERS Safety Report 16927313 (Version 1)
Quarter: 2019Q4

REPORT INFORMATION
  Report Type: Spontaneous
  Country: US (occurrence: US)
  Receive Date: 20191016
  Receipt Date: 20191016
  Transmission Date: 20200122
  Serious: No
  Sender: FDA-Public Use
  Company Number: US-OPTINOSE US, INC-2019OPT000821

PATIENT
  Sex: Female

DRUGS (1)
  1. XHANCE [Suspect]
     Active Substance: FLUTICASONE PROPIONATE
     Indication: ANOSMIA
     Route: 045
     Dates: start: 2019

REACTIONS (2)
  - No adverse event [Unknown]
  - Product use in unapproved indication [Not Recovered/Not Resolved]
